FAERS Safety Report 25512826 (Version 3)
Quarter: 2025Q3

REPORT INFORMATION
  Report Type: Spontaneous
  Country: EU (occurrence: EU)
  Receive Date: 20250703
  Receipt Date: 20250729
  Transmission Date: 20251020
  Serious: Yes (Other)
  Sender: ABBVIE
  Company Number: None

PATIENT
  Age: 22 Year
  Sex: Female

DRUGS (2)
  1. HUMIRA [Suspect]
     Active Substance: ADALIMUMAB
     Indication: Juvenile idiopathic arthritis
     Route: 058
  2. IMRALDI [Suspect]
     Active Substance: ADALIMUMAB
     Indication: Juvenile idiopathic arthritis
     Dosage: 40 MG SUBCUTANEOUSLY EVERY 14 DAYS
     Route: 058
     Dates: start: 20250502, end: 20250627

REACTIONS (6)
  - Joint swelling [Recovered/Resolved]
  - Condition aggravated [Recovered/Resolved]
  - Uveitis [Recovered/Resolved]
  - Product substitution issue [Recovered/Resolved]
  - Therapeutic product effect decreased [Recovered/Resolved]
  - Arthralgia [Recovered/Resolved]

NARRATIVE: CASE EVENT DATE: 20240501
